FAERS Safety Report 6997791-2 (Version None)
Quarter: 2010Q3

REPORT INFORMATION
  Report Type: 
  Country: None (occurrence: None)
  Receive Date: 20100920
  Receipt Date: 20100910
  Transmission Date: 20110219
  Serious: Yes (Hospitalization)
  Sender: FDA-Public Use
  Company Number: US-BIOGENIDEC-2010BI031650

PATIENT
  Age: 63 Year
  Sex: Female
  Weight: 65 kg

DRUGS (1)
  1. TYSABRI [Suspect]
     Indication: MULTIPLE SCLEROSIS
     Route: 042
     Dates: start: 20090301

REACTIONS (6)
  - ASTHENIA [None]
  - CYSTITIS [None]
  - FOOD POISONING [None]
  - HAEMATOCHEZIA [None]
  - MOTOR DYSFUNCTION [None]
  - PERONEAL NERVE PALSY [None]
